FAERS Safety Report 5027390-3 (Version None)
Quarter: 2006Q2

REPORT INFORMATION
  Report Type: 
  Country: None (occurrence: None)
  Receive Date: 20060501
  Receipt Date: 20060215
  Transmission Date: 20061013
  Serious: Yes (Disabling)
  Sender: FDA-Public Use
  Company Number: 200610826BWH

PATIENT
  Age: 56 Year
  Sex: Male
  Weight: 122.4712 kg

DRUGS (19)
  1. NEXAVAR [Suspect]
     Indication: NEUROENDOCRINE CARCINOMA
     Dosage: SEE IMAGE, ORAL
     Route: 048
     Dates: start: 20060207, end: 20060214
  2. NEXAVAR [Suspect]
     Indication: NEUROENDOCRINE CARCINOMA
     Dosage: SEE IMAGE, ORAL
     Route: 048
     Dates: start: 20060214
  3. LISINOPRIL [Concomitant]
  4. VANCOMYCIN [Concomitant]
  5. CIPROFLOXACIN [Concomitant]
  6. OXYCONTIN [Concomitant]
  7. FLOMAX [Concomitant]
  8. PRILOSEC [Concomitant]
  9. DAYPRO [Concomitant]
  10. PANCREATIC ENZYMES [Concomitant]
  11. METFORMIN [Concomitant]
  12. SANDOSTATIN [Concomitant]
  13. ULTRAM [Concomitant]
  14. LOPERAMIDE [Concomitant]
  15. PERCOCET [Concomitant]
  16. MUCINEX [Concomitant]
  17. SKELAXIN [Concomitant]
  18. SANDOSTATIN LAR [Concomitant]
  19. DOXYCYCLINE [Concomitant]

REACTIONS (7)
  - ARTHRALGIA [None]
  - BLOOD PRESSURE INCREASED [None]
  - DIARRHOEA [None]
  - DRY SKIN [None]
  - DYSPHONIA [None]
  - MYALGIA [None]
  - NEUROPATHY PERIPHERAL [None]
